FAERS Safety Report 6696726-X (Version None)
Quarter: 2010Q2

REPORT INFORMATION
  Report Type: 
  Country: None (occurrence: None)
  Receive Date: 20100426
  Receipt Date: 20100329
  Transmission Date: 20101027
  Serious: Yes (Death, Hospitalization, Other)
  Sender: FDA-Public Use
  Company Number: JP-ASTRAZENECA-2007SE01852

PATIENT
  Age: 25915 Day
  Sex: Male
  Weight: 76 kg

DRUGS (14)
  1. CANDESARTAN CILEXETIL [Suspect]
     Indication: HYPERTENSION
     Route: 048
  2. ENBREL 25MG FOR S.C. INJECTION [Suspect]
     Indication: RHEUMATOID ARTHRITIS
     Route: 058
     Dates: start: 20060828, end: 20061005
  3. ENBREL 25MG FOR S.C. INJECTION [Suspect]
     Route: 058
     Dates: start: 20061008, end: 20061016
  4. DECADRON [Suspect]
     Indication: RHEUMATOID ARTHRITIS
     Dosage: 1 MG (MORNING 0.75 MG AND EVENING 0.25 MG)
     Route: 048
  5. ALFAROL [Concomitant]
     Indication: OSTEOPOROSIS
     Route: 048
  6. ULCERLMIN [Concomitant]
     Indication: GASTRITIS
     Route: 048
  7. AMOBAN [Concomitant]
     Indication: INSOMNIA
     Route: 048
  8. ISCOTIN [Concomitant]
     Indication: ANTIBIOTIC PROPHYLAXIS
     Route: 048
     Dates: start: 20060607
  9. PYDOXAL [Concomitant]
     Indication: PROPHYLAXIS
     Route: 048
  10. LOXONIN [Concomitant]
     Indication: RHEUMATOID ARTHRITIS
     Route: 048
  11. METALCAPTASE [Concomitant]
     Indication: RHEUMATOID ARTHRITIS
     Route: 048
     Dates: start: 20051207, end: 20061018
  12. ISODINE GARGLE [Concomitant]
     Route: 049
  13. MYCOSPOR [Concomitant]
     Route: 062
  14. CATLEP [Concomitant]
     Indication: RHEUMATOID ARTHRITIS
     Route: 065

REACTIONS (6)
  - CYTOMEGALOVIRUS VIRAEMIA [None]
  - ENTERITIS INFECTIOUS [None]
  - HEPATIC ENZYME INCREASED [None]
  - PNEUMOCYSTIS JIROVECI PNEUMONIA [None]
  - PROTEIN-LOSING GASTROENTEROPATHY [None]
  - RENAL DISORDER [None]
